FAERS Safety Report 12371014 (Version 2)
Quarter: 2019Q1

REPORT INFORMATION
  Report Type: Spontaneous
  Country: ES (occurrence: ES)
  Receive Date: 20160516
  Receipt Date: 20190328
  Transmission Date: 20190417
  Serious: Yes (Hospitalization, Other)
  Sender: FDA-Public Use
  Company Number: ES-ACCORD-040432

PATIENT
  Age: 78 Year
  Sex: Male

DRUGS (10)
  1. CLOPIDOGREL [Suspect]
     Active Substance: CLOPIDOGREL BISULFATE
     Indication: VASCULAR GRAFT
  2. GLYCERYL TRINITRATE [Concomitant]
     Active Substance: NITROGLYCERIN
     Dosage: PATCHES
  3. AMLODIPINE [Concomitant]
     Active Substance: AMLODIPINE BESYLATE
  4. EZETIMIBE. [Concomitant]
     Active Substance: EZETIMIBE
  5. LEVOTHYROXINE/LEVOTHYROXINE SODIUM [Concomitant]
  6. RANITIDINE. [Concomitant]
     Active Substance: RANITIDINE
  7. INSULIN [Concomitant]
     Active Substance: INSULIN NOS
  8. ATORVASTATIN/ATORVASTATIN CALCIUM [Concomitant]
  9. FUROSEMIDE. [Concomitant]
     Active Substance: FUROSEMIDE
  10. SODIUM BICARBONATE. [Concomitant]
     Active Substance: SODIUM BICARBONATE

REACTIONS (2)
  - Steatohepatitis [Recovered/Resolved]
  - Hepatitis cholestatic [Recovered/Resolved]
